FAERS Safety Report 7444734-3 (Version None)
Quarter: 2011Q2

REPORT INFORMATION
  Report Type: 
  Country: None (occurrence: None)
  Receive Date: 20110429
  Receipt Date: 20100322
  Transmission Date: 20111010
  Serious: No
  Sender: FDA-Public Use
  Company Number: US-PFIZER INC-US-WYE-H14289610

PATIENT
  Age: 22 Year
  Sex: Female
  Weight: 61.2 kg

DRUGS (2)
  1. VITAMINS [Concomitant]
  2. ADVIL ALLERGY SINUS [Suspect]
     Indication: SEASONAL ALLERGY
     Dosage: 1 DF, 1X/DAY
     Route: 048
     Dates: start: 20100321

REACTIONS (1)
  - DRUG EFFECT DECREASED [None]
